FAERS Safety Report 21449441 (Version 2)
Quarter: 2022Q4

REPORT INFORMATION
  Report Type: Report from Study
  Country: US (occurrence: US)
  Receive Date: 20221013
  Receipt Date: 20221117
  Transmission Date: 20230113
  Serious: Yes (Other)
  Sender: FDA-Public Use
  Company Number: US-ABBVIE-22K-163-4412013-00

PATIENT
  Sex: Female

DRUGS (3)
  1. HUMIRA [Suspect]
     Active Substance: ADALIMUMAB
     Indication: Psoriatic arthropathy
     Dosage: FORM STRENGTH: 40MG
     Route: 058
     Dates: start: 20211014, end: 2022
  2. HUMIRA [Suspect]
     Active Substance: ADALIMUMAB
     Dosage: FORM STRENGTH: 40MG
     Route: 058
     Dates: start: 20221003
  3. PREMARIN [Concomitant]
     Active Substance: ESTROGENS, CONJUGATED
     Indication: Product used for unknown indication

REACTIONS (19)
  - Spinal fusion surgery [Recovering/Resolving]
  - Spinal pain [Not Recovered/Not Resolved]
  - Nerve injury [Not Recovered/Not Resolved]
  - Back disorder [Recovering/Resolving]
  - Psoriatic arthropathy [Unknown]
  - Pain [Not Recovered/Not Resolved]
  - Neuralgia [Not Recovered/Not Resolved]
  - Oropharyngeal pain [Unknown]
  - Hyperhidrosis [Unknown]
  - Pain [Recovering/Resolving]
  - Arthralgia [Not Recovered/Not Resolved]
  - Musculoskeletal discomfort [Unknown]
  - Cabin fever [Unknown]
  - Headache [Unknown]
  - Diarrhoea [Unknown]
  - Crying [Unknown]
  - Post procedural complication [Unknown]
  - Emotional disorder [Unknown]
  - Drug ineffective [Unknown]

NARRATIVE: CASE EVENT DATE: 20210101
